FAERS Safety Report 4816369-X (Version None)
Quarter: 2005Q4

REPORT INFORMATION
  Report Type: 
  Country: None (occurrence: None)
  Receive Date: 20051028
  Receipt Date: 20051024
  Transmission Date: 20060501
  Serious: Yes (Life-Threatening, Hospitalization, Disabling)
  Sender: FDA-Public Use
  Company Number: 2005-133893-NL

PATIENT

DRUGS (1)
  1. ROCURONIUM BROMIDE [Suspect]

REACTIONS (2)
  - BRAIN DEATH [None]
  - HYPOKALAEMIA [None]
